FAERS Safety Report 19391554 (Version 1)
Quarter: 2021Q2

REPORT INFORMATION
  Report Type: Spontaneous
  Country: US (occurrence: US)
  Receive Date: 20210609
  Receipt Date: 20210609
  Transmission Date: 20210717
  Serious: Yes (Other)
  Sender: FDA-Public Use
  Company Number: US-Y-MABS THERAPEUTICS-2112501

PATIENT
  Sex: Male

DRUGS (1)
  1. DANYELZA [Suspect]
     Active Substance: NAXITAMAB-GQGK
     Indication: NEUROBLASTOMA
     Route: 042
     Dates: start: 20210407, end: 20210521

REACTIONS (4)
  - Electrocardiogram QT prolonged [Unknown]
  - Bronchospasm [Unknown]
  - Hypertension [Unknown]
  - Tachycardia [Unknown]
